FAERS Safety Report 11645750 (Version 1)
Quarter: 2015Q4

REPORT INFORMATION
  Report Type: Spontaneous
  Country: US (occurrence: US)
  Receive Date: 20151020
  Receipt Date: 20151020
  Transmission Date: 20160304
  Serious: No
  Sender: FDA-Public Use
  Company Number: US-FRESENIUS KABI-FK201505127

PATIENT

DRUGS (1)
  1. PROPOFOL FRESENIUS (NOT SPECIFIED) [Suspect]
     Active Substance: PROPOFOL
     Indication: PRODUCT USED FOR UNKNOWN INDICATION
     Route: 042
     Dates: start: 20151016

REACTIONS (1)
  - Infusion site extravasation [Unknown]
